FAERS Safety Report 5232811-7 (Version None)
Quarter: 2007Q1

REPORT INFORMATION
  Report Type: 
  Country: None (occurrence: None)
  Receive Date: 20070206
  Receipt Date: 20070206
  Transmission Date: 20070707
  Serious: Yes (Hospitalization)
  Sender: FDA-Public Use
  Company Number: None

PATIENT
  Sex: Male
  Weight: 77.8 kg

DRUGS (1)
  1. FLUCONAZOLE [Suspect]
     Indication: CLOSTRIDIAL INFECTION
     Dosage: 200MG QD PO
     Route: 048
     Dates: start: 20061014, end: 20061218

REACTIONS (7)
  - ACUTE HEPATIC FAILURE [None]
  - ASCITES [None]
  - HYPONATRAEMIA [None]
  - OESOPHAGEAL HAEMORRHAGE [None]
  - OESOPHAGEAL ULCER [None]
  - RENAL FAILURE ACUTE [None]
  - SEPSIS [None]
